FAERS Safety Report 5755403-X (Version None)
Quarter: 2008Q2

REPORT INFORMATION
  Report Type: 
  Country: None (occurrence: None)
  Receive Date: 20080529
  Receipt Date: 20080529
  Transmission Date: 20081010
  Serious: Yes (Hospitalization)
  Sender: FDA-Public Use
  Company Number: None

PATIENT
  Sex: Male
  Weight: 161 kg

DRUGS (2)
  1. CISPLATIN [Suspect]
     Indication: LARYNGEAL CANCER
     Dosage: 100MG/M2 Q21 DAYS IV
     Route: 042
     Dates: start: 20080521
  2. CETUXIMAB [Suspect]
     Indication: LARYNGEAL CANCER
     Dosage: 250 MG/M2 QWEEK IV
     Route: 042
     Dates: start: 20080401

REACTIONS (2)
  - HYPOGLYCAEMIA [None]
  - ORAL INTAKE REDUCED [None]
